FAERS Safety Report 6249080-1 (Version None)
Quarter: 2009Q2

REPORT INFORMATION
  Report Type: 
  Country: None (occurrence: None)
  Receive Date: 20090625
  Receipt Date: 20090615
  Transmission Date: 20091009
  Serious: Yes (Other)
  Sender: FDA-Public Use
  Company Number: AE-2009-094

PATIENT
  Age: 15 Year
  Sex: Female
  Weight: 48 kg

DRUGS (1)
  1. METOCLOPRAMIDE [Suspect]
     Indication: NAUSEA
     Dosage: 10MG, BID, ORAL
     Route: 048

REACTIONS (3)
  - HYPERKINESIA [None]
  - MYOCLONUS [None]
  - OROPHARYNGEAL PAIN [None]
